FAERS Safety Report 13119345 (Version 2)
Quarter: 2017Q1

REPORT INFORMATION
  Report Type: Spontaneous
  Country: AU (occurrence: AU)
  Receive Date: 20170116
  Receipt Date: 20170329
  Transmission Date: 20170428
  Serious: Yes (Other)
  Sender: FDA-Public Use
  Company Number: AU-ALLERGAN-1675132US

PATIENT
  Age: 69 Year
  Sex: Female

DRUGS (2)
  1. OZURDEX [Suspect]
     Active Substance: DEXAMETHASONE
     Indication: UVEITIS
     Dosage: 0.7 MG, SINGLE
     Route: 031
     Dates: start: 20160212, end: 20160212
  2. OZURDEX [Suspect]
     Active Substance: DEXAMETHASONE
     Indication: DIABETIC RETINAL OEDEMA

REACTIONS (3)
  - Chorioretinitis [Recovered/Resolved]
  - Foreign body in eye [Recovered/Resolved]
  - Eye discharge [Recovered/Resolved]

NARRATIVE: CASE EVENT DATE: 20160215
